FAERS Safety Report 25616188 (Version 1)
Quarter: 2025Q3

REPORT INFORMATION
  Report Type: Spontaneous
  Country: EU (occurrence: EU)
  Receive Date: 20250729
  Receipt Date: 20250729
  Transmission Date: 20251020
  Serious: Yes (Hospitalization, Other)
  Sender: AUROBINDO
  Company Number: EU-AFSSAPS-AVCN2025000525

PATIENT
  Age: 41 Year
  Sex: Male

DRUGS (5)
  1. DIAZEPAM [Suspect]
     Active Substance: DIAZEPAM
     Indication: Product used for unknown indication
     Route: 065
  2. OXAZEPAM [Suspect]
     Active Substance: OXAZEPAM
     Indication: Product used for unknown indication
     Route: 065
  3. COCAINE [Suspect]
     Active Substance: COCAINE
     Indication: Product used for unknown indication
     Route: 045
     Dates: start: 1999
  4. COCAINE [Suspect]
     Active Substance: COCAINE
  5. TOBACCO LEAF [Suspect]
     Active Substance: TOBACCO LEAF
     Indication: Product used for unknown indication
     Dates: start: 1995

REACTIONS (4)
  - Drug abuse [Recovering/Resolving]
  - Gastrooesophageal reflux disease [Recovering/Resolving]
  - Sleep disorder [Recovering/Resolving]
  - Behavioural addiction [Not Recovered/Not Resolved]

NARRATIVE: CASE EVENT DATE: 19950101
